FAERS Safety Report 13491373 (Version 1)
Quarter: 2017Q2

REPORT INFORMATION
  Report Type: Spontaneous
  Country: TH (occurrence: TH)
  Receive Date: 20170427
  Receipt Date: 20170427
  Transmission Date: 20170830
  Serious: Yes (Death)
  Sender: FDA-Public Use
  Company Number: TH-BAXTER-2017BAX017974

PATIENT
  Age: 56 Year
  Sex: Female

DRUGS (1)
  1. DIANEAL PD-2 WITH DEXTROSE [Suspect]
     Active Substance: CALCIUM CHLORIDE\DEXTROSE\MAGNESIUM CHLORIDE\SODIUM CHLORIDE\SODIUM LACTATE
     Indication: END STAGE RENAL DISEASE
     Route: 033
     Dates: start: 20150125, end: 20170405

REACTIONS (4)
  - Cerebrovascular disorder [Fatal]
  - Decreased appetite [Fatal]
  - Somnolence [Fatal]
  - Loss of consciousness [Fatal]

NARRATIVE: CASE EVENT DATE: 20170405
